FAERS Safety Report 5842798-1 (Version None)
Quarter: 2008Q3

REPORT INFORMATION
  Report Type: 
  Country: None (occurrence: None)
  Receive Date: 20080811
  Receipt Date: 20080724
  Transmission Date: 20090109
  Serious: Yes (Hospitalization)
  Sender: FDA-Public Use
  Company Number: 8035101

PATIENT
  Age: 51 Year
  Sex: Female
  Weight: 162.6 kg

DRUGS (1)
  1. KEPPRA [Suspect]
     Indication: CONVULSION
     Dosage: 5 ML 2/D PO
     Route: 048
     Dates: start: 20050101

REACTIONS (3)
  - CONVULSION [None]
  - DRUG LEVEL DECREASED [None]
  - PSYCHOMOTOR HYPERACTIVITY [None]
